FAERS Safety Report 8984065 (Version 2)
Quarter: 2012Q4

REPORT INFORMATION
  Report Type: Spontaneous
  Country: BR (occurrence: None)
  Receive Date: 20121214
  Receipt Date: 20121220
  Transmission Date: 20130627
  Serious: Yes (Death, Other)
  Sender: FDA-Public Use
  Company Number: DSU-2012-09631

PATIENT
  Age: 64 Year
  Sex: Male

DRUGS (1)
  1. OLMETEC [Suspect]
     Indication: DRUG USE FOR UNKNOWN INDICATION
     Dosage: 40 mg (40 mg, qd), per oral
     Route: 048
     Dates: start: 20090402

REACTIONS (2)
  - Cerebrovascular accident [None]
  - Thrombosis [None]
